FAERS Safety Report 9159640 (Version 2)
Quarter: 2013Q2

REPORT INFORMATION
  Report Type: Spontaneous
  Country: US (occurrence: US)
  Receive Date: 20130313
  Receipt Date: 20130426
  Transmission Date: 20140414
  Serious: Yes (Other)
  Sender: FDA-Public Use
  Company Number: US-PFIZER INC-2013084086

PATIENT
  Age: 84 Year
  Sex: Female
  Weight: 74.38 kg

DRUGS (3)
  1. ZOLOFT [Suspect]
     Indication: DEPRESSION
     Dosage: 100 MG, 1X/DAY
     Route: 048
     Dates: start: 20120907
  2. LORAZEPAM [Concomitant]
     Indication: ANXIETY
     Dosage: 0.5 MG, 2X/DAY
  3. REMERON [Concomitant]
     Indication: ANXIETY
     Dosage: 15 MG, UNK

REACTIONS (1)
  - Hallucination [Not Recovered/Not Resolved]
